FAERS Safety Report 23090050 (Version 2)
Quarter: 2024Q1

REPORT INFORMATION
  Report Type: Spontaneous
  Country: US (occurrence: US)
  Receive Date: 20231020
  Receipt Date: 20240221
  Transmission Date: 20240410
  Serious: Yes (Other)
  Sender: FDA-Public Use
  Company Number: US-CIPLA LTD.-2023US06496

PATIENT

DRUGS (1)
  1. HYDRALAZINE [Suspect]
     Active Substance: HYDRALAZINE HYDROCHLORIDE
     Indication: Product used for unknown indication
     Dosage: UNK, LONGSTANDING TREATMENT
     Route: 065

REACTIONS (5)
  - Acute kidney injury [Unknown]
  - Anti-neutrophil cytoplasmic antibody positive vasculitis [Recovering/Resolving]
  - Cardiogenic shock [Unknown]
  - Stress cardiomyopathy [Unknown]
  - Anaemia [Unknown]
